FAERS Safety Report 18699552 (Version 1)
Quarter: 2021Q1

REPORT INFORMATION
  Report Type: Spontaneous
  Country: US (occurrence: US)
  Receive Date: 20210104
  Receipt Date: 20210104
  Transmission Date: 20210419
  Serious: No
  Sender: FDA-Public Use
  Company Number: US-PFIZER INC-2020517846

PATIENT
  Age: 61 Year
  Sex: Female
  Weight: 65.77 kg

DRUGS (3)
  1. LYRICA [Suspect]
     Active Substance: PREGABALIN
     Indication: FIBROMYALGIA
     Dosage: 550 MG, DAILY (50MG, TAKES BY MOUTH 4 IN THE MORNING, 3 MID DAY, 4 IN THE EVENING)
     Route: 048
     Dates: start: 2010
  2. LYRICA [Suspect]
     Active Substance: PREGABALIN
     Dosage: 100 MG
  3. LYRICA [Suspect]
     Active Substance: PREGABALIN
     Dosage: 75 MG
     Dates: start: 2011, end: 2011

REACTIONS (3)
  - Prescribed overdose [Not Recovered/Not Resolved]
  - Nervous system disorder [Unknown]
  - Paraesthesia [Unknown]

NARRATIVE: CASE EVENT DATE: 2011
